FAERS Safety Report 8520535-X (Version None)
Quarter: 2012Q3

REPORT INFORMATION
  Report Type: 
  Country: None (occurrence: None)
  Receive Date: 20120719
  Receipt Date: 20120705
  Transmission Date: 20120928
  Serious: Yes (Other)
  Sender: FDA-Public Use
  Company Number: 2012SP001530

PATIENT
  Age: 24 Year
  Sex: Female

DRUGS (4)
  1. LUNESTA [Suspect]
     Route: 048
     Dates: start: 20120501
  2. ALL OTHER THERAPEUTIC PRODUCTS [Concomitant]
  3. LUNESTA [Suspect]
     Indication: INSOMNIA
     Route: 048
     Dates: start: 20120501, end: 20120501
  4. CLOTIAZEPAM [Concomitant]
     Indication: DEPRESSION
     Route: 048
     Dates: start: 20120401

REACTIONS (1)
  - EPILEPSY [None]
